FAERS Safety Report 14694613 (Version 16)
Quarter: 2019Q2

REPORT INFORMATION
  Report Type: Spontaneous
  Country: CA (occurrence: CA)
  Receive Date: 20180329
  Receipt Date: 20190621
  Transmission Date: 20190711
  Serious: Yes (Other)
  Sender: FDA-Public Use
  Company Number: CA-CELLTRION INC.-2018CA018914

PATIENT

DRUGS (14)
  1. INFLECTRA [Suspect]
     Active Substance: INFLIXIMAB-DYYB
     Dosage: 800MG, EVERY 8  WEEKS
     Route: 042
     Dates: start: 20181212
  2. MEZAVANT [Concomitant]
     Active Substance: MESALAMINE
     Dosage: 4.8 G, DAILY
  3. SALOFALK [MESALAZINE] [Concomitant]
     Active Substance: MESALAMINE
     Dosage: UNK, 1X/DAY
     Route: 054
  4. INFLECTRA [Suspect]
     Active Substance: INFLIXIMAB-DYYB
     Dosage: 450 MG, 0, 2, 6 WEEKS, THEN EVERY 8 WEEKS
     Route: 042
     Dates: start: 20180307
  5. IMURAN [Concomitant]
     Active Substance: AZATHIOPRINE
     Dosage: 150 MG, 1X/DAY
     Route: 048
  6. INFLECTRA [Suspect]
     Active Substance: INFLIXIMAB-DYYB
     Dosage: 800MG, EVERY 8  WEEKS
     Route: 042
     Dates: start: 20190606
  7. INFLECTRA [Suspect]
     Active Substance: INFLIXIMAB-DYYB
     Dosage: 450 MG, 0,2,6  WEEKS, THEN EVERY 8 WEEKS
     Route: 042
     Dates: start: 20180502
  8. INFLECTRA [Suspect]
     Active Substance: INFLIXIMAB-DYYB
     Dosage: 600 MG, EVERY 8  WEEKS
     Route: 042
     Dates: start: 20180810
  9. INFLECTRA [Suspect]
     Active Substance: INFLIXIMAB-DYYB
     Dosage: 800MG, EVERY 8  WEEKS
     Route: 042
     Dates: start: 20190206
  10. INFLECTRA [Suspect]
     Active Substance: INFLIXIMAB-DYYB
     Dosage: 800MG, EVERY 8  WEEKS
     Route: 042
     Dates: start: 20190403
  11. MEZAVANT [Concomitant]
     Active Substance: MESALAMINE
     Dosage: 2.4 G, 2X/DAY
     Route: 048
  12. INFLECTRA [Suspect]
     Active Substance: INFLIXIMAB-DYYB
     Indication: COLITIS ULCERATIVE
     Dosage: 450 MG, 0, 2, 6 WEEKS, THEN EVERY 8 WEEKS
     Route: 042
     Dates: start: 20180122, end: 20180502
  13. INFLECTRA [Suspect]
     Active Substance: INFLIXIMAB-DYYB
     Dosage: 600 MG, EVERY 8  WEEKS
     Route: 042
     Dates: start: 20180626, end: 20181018
  14. INFLECTRA [Suspect]
     Active Substance: INFLIXIMAB-DYYB
     Dosage: 600 MG, EVERY 8  WEEKS
     Route: 042
     Dates: start: 20181017

REACTIONS (9)
  - Drug level below therapeutic [Not Recovered/Not Resolved]
  - Blood pressure fluctuation [Unknown]
  - Product use issue [Unknown]
  - Drug ineffective [Not Recovered/Not Resolved]
  - Condition aggravated [Unknown]
  - Off label use [Unknown]
  - Product use issue [Unknown]
  - Faecal calprotectin increased [Unknown]
  - Haematochezia [Unknown]

NARRATIVE: CASE EVENT DATE: 20181017
